FAERS Safety Report 11043109 (Version 1)
Quarter: 2015Q2

REPORT INFORMATION
  Report Type: Spontaneous
  Country: US (occurrence: None)
  Receive Date: 20150416
  Receipt Date: 20150416
  Transmission Date: 20150821
  Serious: No
  Sender: FDA-Public Use
  Company Number: None

PATIENT

DRUGS (2)
  1. VIPERSLIDE [Suspect]
     Active Substance: DEVICE
     Route: 042
  2. INTRALIPID [Suspect]
     Active Substance: EGG PHOSPHOLIPIDS\GLYCERIN\SOYBEAN OIL
     Route: 042

REACTIONS (2)
  - Circumstance or information capable of leading to device use error [None]
  - Circumstance or information capable of leading to medication error [None]
